FAERS Safety Report 4360961-6 (Version None)
Quarter: 2004Q2

REPORT INFORMATION
  Report Type: 
  Country: None (occurrence: None)
  Receive Date: 20040514
  Receipt Date: 20040430
  Transmission Date: 20050107
  Serious: Yes (Life-Threatening, Hospitalization)
  Sender: FDA-Public Use
  Company Number: US013047

PATIENT
  Age: 44 Year
  Sex: Male
  Weight: 86.1834 kg

DRUGS (2)
  1. MODAFINIL / PLACEBO [Suspect]
     Indication: ANTIDEPRESSANT THERAPY
     Dosage: MG QD ORAL
     Route: 048
     Dates: start: 20040416, end: 20040423
  2. SERTRALINE [Concomitant]

REACTIONS (6)
  - AFFECT LABILITY [None]
  - ANXIETY [None]
  - FLUSHING [None]
  - HYPERHIDROSIS [None]
  - MAJOR DEPRESSION [None]
  - SUICIDAL IDEATION [None]
